FAERS Safety Report 6008196-5 (Version None)
Quarter: 2008Q4

REPORT INFORMATION
  Report Type: 
  Country: None (occurrence: None)
  Receive Date: 20081217
  Receipt Date: 20080722
  Transmission Date: 20090506
  Serious: No
  Sender: FDA-Public Use
  Company Number: US-ASTRAZENECA-2008UW15287

PATIENT
  Age: 77 Year
  Sex: Female
  Weight: 83.9 kg

DRUGS (1)
  1. CRESTOR [Suspect]
     Indication: BLOOD CHOLESTEROL INCREASED
     Dosage: 5 MG EVERY OTHER DAY
     Route: 048
     Dates: start: 20080101

REACTIONS (3)
  - BALANCE DISORDER [None]
  - DIZZINESS [None]
  - FALL [None]
